FAERS Safety Report 7064257-3 (Version None)
Quarter: 2010Q4

REPORT INFORMATION
  Report Type: 
  Country: None (occurrence: None)
  Receive Date: 20101027
  Receipt Date: 20100908
  Transmission Date: 20110411
  Serious: Yes (Other)
  Sender: FDA-Public Use
  Company Number: MY-RANBAXY-2010R3-38459

PATIENT

DRUGS (2)
  1. RISPERIDONE [Suspect]
     Indication: SCHIZOPHRENIA
     Dosage: 1 MG, UNK
     Route: 065
  2. RESPIDONE [Suspect]
     Indication: SCHIZOPHRENIA
     Dosage: 2 MG, UNK
     Route: 065

REACTIONS (1)
  - DRUG INEFFECTIVE [None]
